FAERS Safety Report 20645095 (Version 1)
Quarter: 2022Q1

REPORT INFORMATION
  Report Type: Spontaneous
  Country: US (occurrence: None)
  Receive Date: 20220328
  Receipt Date: 20220328
  Transmission Date: 20220423
  Serious: No
  Sender: FDA-Public Use
  Company Number: 2022A110227

PATIENT
  Sex: Male

DRUGS (4)
  1. BYDUREON BCISE [Suspect]
     Active Substance: EXENATIDE
     Indication: Type 2 diabetes mellitus
     Route: 058
  2. BYDUREON [Suspect]
     Active Substance: EXENATIDE
     Indication: Type 3 diabetes mellitus
     Route: 058
  3. BYETTA [Suspect]
     Active Substance: EXENATIDE
     Indication: Type 2 diabetes mellitus
     Route: 058
  4. METFORMIN [Concomitant]
     Active Substance: METFORMIN HYDROCHLORIDE

REACTIONS (9)
  - Visual impairment [Not Recovered/Not Resolved]
  - Cataract [Not Recovered/Not Resolved]
  - Loss of consciousness [Unknown]
  - Skin lesion [Not Recovered/Not Resolved]
  - Glaucoma [Not Recovered/Not Resolved]
  - Body height abnormal [Unknown]
  - Weight decreased [Unknown]
  - Product dose omission issue [Unknown]
  - Wrong technique in device usage process [Unknown]
